FAERS Safety Report 13637168 (Version 3)
Quarter: 2017Q3

REPORT INFORMATION
  Report Type: Spontaneous
  Country: US (occurrence: US)
  Receive Date: 20170609
  Receipt Date: 20170828
  Transmission Date: 20171127
  Serious: No
  Sender: FDA-Public Use
  Company Number: US-GLAXOSMITHKLINE-US2017088060

PATIENT
  Sex: Female

DRUGS (2)
  1. QUINIDINE [Concomitant]
     Active Substance: QUINIDINE
  2. ARNUITY ELLIPTA [Suspect]
     Active Substance: FLUTICASONE FUROATE
     Indication: ASTHMA
     Dosage: 1 PUFF(S), QD
     Route: 055
     Dates: start: 201701

REACTIONS (2)
  - Product quality issue [Unknown]
  - Drug ineffective [Unknown]
